FAERS Safety Report 7298376-3 (Version None)
Quarter: 2011Q1

REPORT INFORMATION
  Report Type: 
  Country: None (occurrence: None)
  Receive Date: 20110217
  Receipt Date: 20110208
  Transmission Date: 20110831
  Serious: Yes (Other)
  Sender: FDA-Public Use
  Company Number: BR-US-EMD SERONO, INC.-7039304

PATIENT
  Sex: Female

DRUGS (2)
  1. REBIF [Suspect]
     Indication: RELAPSING-REMITTING MULTIPLE SCLEROSIS
     Dates: start: 20030616
  2. TYLENOL [Concomitant]

REACTIONS (8)
  - SENSORY DISTURBANCE [None]
  - CHOLELITHIASIS [None]
  - SENSATION OF HEAVINESS [None]
  - LABYRINTHITIS [None]
  - NEPHROLITHIASIS [None]
  - HYPERTENSION [None]
  - DRUG HYPERSENSITIVITY [None]
  - CENTRAL NERVOUS SYSTEM LESION [None]
